FAERS Safety Report 14138595 (Version 7)
Quarter: 2018Q2

REPORT INFORMATION
  Report Type: Report from Study
  Country: DE (occurrence: DE)
  Receive Date: 20171027
  Receipt Date: 20180607
  Transmission Date: 20180711
  Serious: Yes (Other)
  Sender: FDA-Public Use
  Company Number: DE-UCBSA-2017043040

PATIENT
  Sex: Male
  Weight: 3.4 kg

DRUGS (1)
  1. CERTOLIZUMAB PEGOL [Suspect]
     Active Substance: CERTOLIZUMAB PEGOL
     Indication: AXIAL SPONDYLOARTHRITIS
     Dosage: UNK
     Route: 050

REACTIONS (2)
  - Paternal exposure timing unspecified [Unknown]
  - Sepsis neonatal [Recovered/Resolved]

NARRATIVE: CASE EVENT DATE: 201710
